FAERS Safety Report 19273820 (Version 1)
Quarter: 2021Q2

REPORT INFORMATION
  Report Type: Spontaneous
  Country: US (occurrence: US)
  Receive Date: 20210519
  Receipt Date: 20210519
  Transmission Date: 20210717
  Serious: No
  Sender: FDA-Public Use
  Company Number: US-CELLTRION INC.-2021US005784

PATIENT

DRUGS (2)
  1. TRUXIMA [Suspect]
     Active Substance: RITUXIMAB-ABBS
     Indication: LYMPHOPROLIFERATIVE DISORDER
     Dosage: 660 MG, Q 8 WEEKS (50 ML)
     Route: 042
     Dates: start: 20210312, end: 20210312
  2. TRUXIMA [Suspect]
     Active Substance: RITUXIMAB-ABBS
     Indication: COLD TYPE HAEMOLYTIC ANAEMIA
     Dosage: 660 MG, Q 8 WEEKS (10 ML)
     Route: 042
     Dates: start: 20210312, end: 20210312

REACTIONS (1)
  - Off label use [Unknown]

NARRATIVE: CASE EVENT DATE: 20210312
